FAERS Safety Report 5333315-3 (Version None)
Quarter: 2007Q2

REPORT INFORMATION
  Report Type: 
  Country: None (occurrence: None)
  Receive Date: 20070524
  Receipt Date: 20070516
  Transmission Date: 20071010
  Serious: Yes (Hospitalization, Other)
  Sender: FDA-Public Use
  Company Number: CA-JNJFOC-20061105820

PATIENT
  Sex: Female
  Weight: 53 kg

DRUGS (7)
  1. REMICADE [Suspect]
     Route: 042
  2. REMICADE [Suspect]
     Indication: CROHN'S DISEASE
     Route: 042
  3. PREDINISONE [Concomitant]
  4. IMURAN [Concomitant]
  5. IRON [Concomitant]
  6. CALICUM [Concomitant]
  7. VITAMIN D [Concomitant]

REACTIONS (3)
  - INTESTINAL ADENOCARCINOMA [None]
  - LARGE INTESTINE PERFORATION [None]
  - SEPTIC SHOCK [None]
